FAERS Safety Report 8532247-7 (Version None)
Quarter: 2012Q3

REPORT INFORMATION
  Report Type: 
  Country: None (occurrence: None)
  Receive Date: 20120723
  Receipt Date: 20120719
  Transmission Date: 20120928
  Serious: Yes (Hospitalization, Other)
  Sender: FDA-Public Use
  Company Number: CH-AMGEN-CHESP2012041448

PATIENT
  Age: 63 Year
  Sex: Female
  Weight: 35 kg

DRUGS (4)
  1. CALCIMAGON D3 [Concomitant]
     Indication: OSTEOPOROSIS
     Dosage: UNK UNK, BID
     Route: 048
     Dates: start: 20081201
  2. MAGNESIOCARD [Concomitant]
     Indication: VENOUS INSUFFICIENCY
     Dosage: 500 DF, BID
     Route: 048
  3. PROLIA [Suspect]
     Indication: OSTEOPOROSIS POSTMENOPAUSAL
     Dosage: 60 MG, Q6MO
     Route: 058
     Dates: start: 20110215
  4. DIHYDERGOT                         /00017802/ [Concomitant]
     Indication: MUSCLE SPASMS
     Dosage: 2.5 DF, QD
     Route: 048

REACTIONS (1)
  - OSTEONECROSIS OF JAW [None]
